FAERS Safety Report 7682602-2 (Version None)
Quarter: 2011Q3

REPORT INFORMATION
  Report Type: 
  Country: None (occurrence: None)
  Receive Date: 20110815
  Receipt Date: 20110808
  Transmission Date: 20111222
  Serious: Yes (Death, Hospitalization, Other)
  Sender: FDA-Public Use
  Company Number: US-ASTELLAS-2011US000544

PATIENT
  Sex: Female
  Weight: 48 kg

DRUGS (13)
  1. RAPAMYCIN [Concomitant]
     Indication: HEART TRANSPLANT
     Dosage: UNK
     Route: 065
     Dates: start: 20110101
  2. PROGRAF [Suspect]
     Indication: HEART TRANSPLANT
     Dosage: 1.5 MG, BID
     Route: 048
     Dates: start: 19960216, end: 20110204
  3. RAPAMUNE [Concomitant]
     Indication: HEART TRANSPLANT
     Dosage: 2 MG, UID/QD
     Route: 048
     Dates: end: 20110204
  4. RAPAMUNE [Concomitant]
  5. FERROUS SULFATE TAB [Concomitant]
     Indication: ANAEMIA
     Dosage: 320 MG, TID
     Route: 048
     Dates: end: 20110204
  6. CARVEDILOL [Concomitant]
     Indication: PRODUCT USED FOR UNKNOWN INDICATION
     Dosage: UNK
     Route: 065
  7. MYCOPHENOLATE MOFETIL [Concomitant]
     Indication: HEART TRANSPLANT
     Dosage: 750 MG, BID
     Route: 048
     Dates: end: 20110204
  8. ASCORBIC ACID [Concomitant]
     Indication: SUPPLEMENTATION THERAPY
     Dosage: 500 MG, BID
     Route: 048
     Dates: end: 20110204
  9. CALCIUM CARBONATE [Concomitant]
     Indication: SUPPLEMENTATION THERAPY
     Dosage: 500 MG, BID
     Route: 048
     Dates: end: 20110204
  10. ASPIRIN [Concomitant]
     Indication: COAGULOPATHY
     Dosage: 75 MG, UID/QD
     Route: 048
     Dates: end: 20110204
  11. AMBIEN [Concomitant]
     Indication: SLEEP DISORDER
     Dosage: 10 MG, UID/QD
     Route: 048
     Dates: end: 20110204
  12. LIPITOR [Concomitant]
     Indication: BLOOD CHOLESTEROL
     Dosage: 10 MG, UID/QD
     Route: 048
     Dates: end: 20110204
  13. LISINOPRIL [Concomitant]
     Indication: RENAL DISORDER
     Dosage: 2.5 MG, UID/QD
     Route: 048
     Dates: end: 20110204

REACTIONS (25)
  - TREATMENT NONCOMPLIANCE [None]
  - RENAL FAILURE CHRONIC [None]
  - EMPHYSEMA [None]
  - IRON DEFICIENCY ANAEMIA [None]
  - DEPRESSION [None]
  - CORONARY ARTERY DISEASE [None]
  - OROPHARYNGEAL PAIN [None]
  - HYPERTENSION [None]
  - HEART TRANSPLANT REJECTION [None]
  - DEHYDRATION [None]
  - OVARIAN CYST [None]
  - UTERINE LEIOMYOMA [None]
  - OSTEOPENIA [None]
  - FIBROCYSTIC BREAST DISEASE [None]
  - HYPERLIPIDAEMIA [None]
  - HYPONATRAEMIA [None]
  - PULMONARY CONGESTION [None]
  - ACUTE MYOCARDIAL INFARCTION [None]
  - CORONARY ARTERY THROMBOSIS [None]
  - UPPER GASTROINTESTINAL HAEMORRHAGE [None]
  - ATRIOVENTRICULAR BLOCK SECOND DEGREE [None]
  - RENAL FAILURE ACUTE [None]
  - DIARRHOEA [None]
  - SUPRAVENTRICULAR TACHYCARDIA [None]
  - COUGH [None]
